FAERS Safety Report 19567744 (Version 1)
Quarter: 2021Q3

REPORT INFORMATION
  Report Type: Spontaneous
  Country: IT (occurrence: IT)
  Receive Date: 20210716
  Receipt Date: 20210716
  Transmission Date: 20211014
  Serious: Yes (Death, Other)
  Sender: FDA-Public Use
  Company Number: IT-SLATE RUN PHARMACEUTICALS-21IT000577

PATIENT

DRUGS (10)
  1. GANCICLOVIR USP [Suspect]
     Active Substance: GANCICLOVIR
     Dosage: 12 MILLIGRAM PER KILOGRAM, QD
     Route: 042
  2. GANCICLOVIR USP [Suspect]
     Active Substance: GANCICLOVIR
     Dosage: 12 MILLIGRAM PER KILOGRAM, QD
     Route: 042
  3. GENTAMICIN. [Concomitant]
     Active Substance: GENTAMICIN
     Indication: PRODUCT USED FOR UNKNOWN INDICATION
     Dosage: 5 MILLIGRAM PER KILOGRAM, QD
  4. OTHER THERAPEUTIC PRODUCTS [Concomitant]
     Active Substance: UNSPECIFIED INGREDIENT
     Indication: PRODUCT USED FOR UNKNOWN INDICATION
  5. IMMUNOGLOBULIN I.V [Concomitant]
     Active Substance: HUMAN IMMUNOGLOBULIN G
     Indication: PRODUCT USED FOR UNKNOWN INDICATION
     Route: 042
  6. DEXAMETHASONE. [Concomitant]
     Active Substance: DEXAMETHASONE
     Indication: NEONATAL RESPIRATORY DISTRESS
  7. GANCICLOVIR USP [Suspect]
     Active Substance: GANCICLOVIR
     Indication: PNEUMONIA HERPES VIRAL
     Dosage: 12 MILLIGRAM PER KILOGRAM, QD
     Route: 042
  8. AMPICILLIN [Concomitant]
     Active Substance: AMPICILLIN
     Indication: PRODUCT USED FOR UNKNOWN INDICATION
     Dosage: 50 MILLIGRAM PER KILOGRAM, TID
  9. NITRIC OXIDE. [Suspect]
     Active Substance: NITRIC OXIDE
     Indication: PRODUCT USED FOR UNKNOWN INDICATION
     Dosage: 20 PPM
     Route: 055
  10. NITRIC OXIDE. [Suspect]
     Active Substance: NITRIC OXIDE
     Dosage: 40 PPM
     Route: 055

REACTIONS (7)
  - Drug ineffective for unapproved indication [Unknown]
  - Viral load increased [Recovering/Resolving]
  - Neonatal pneumothorax [Fatal]
  - Pulmonary fibrosis [Not Recovered/Not Resolved]
  - Hypertransaminasaemia [Unknown]
  - Acute respiratory distress syndrome [Not Recovered/Not Resolved]
  - Off label use [Unknown]
